FAERS Safety Report 13355129 (Version 3)
Quarter: 2017Q1

REPORT INFORMATION
  Report Type: Report from Study
  Country: GB (occurrence: GB)
  Receive Date: 20170321
  Receipt Date: 20170331
  Transmission Date: 20170429
  Serious: Yes (Hospitalization)
  Sender: FDA-Public Use
  Company Number: GB-ALEXION PHARMACEUTICALS INC.-A201609788

PATIENT
  Age: 1 Year
  Sex: Male
  Weight: 13 kg

DRUGS (23)
  1. OMBERZOL [Concomitant]
     Dosage: 10 MG, QD
     Route: 048
  2. AMLODIPINE [Concomitant]
     Active Substance: AMLODIPINE BESYLATE
     Indication: HYPERTENSION
     Dosage: 5 MG, BID
     Route: 003
     Dates: start: 20161202
  3. AMLODIPINE [Concomitant]
     Active Substance: AMLODIPINE BESYLATE
     Dosage: 5 MG, QD
     Route: 048
  4. SODIUM BICARBONATE. [Concomitant]
     Active Substance: SODIUM BICARBONATE
     Indication: PRODUCT USED FOR UNKNOWN INDICATION
     Dosage: 6 MMOL, QD
     Route: 048
  5. DOMPERDONE [Concomitant]
     Indication: GASTROOESOPHAGEAL REFLUX DISEASE
     Dosage: 2 MG, UNK
     Route: 003
     Dates: start: 20161202
  6. COLECALCIFEROL [Concomitant]
     Active Substance: CHOLECALCIFEROL
     Indication: VITAMIN D DECREASED
     Dosage: 6000 UT, QD
     Route: 003
     Dates: start: 20161202
  7. SYTRON [Concomitant]
     Indication: IRON DEFICIENCY
     Dosage: 2.5 MG, UNK
     Route: 003
     Dates: start: 20161202
  8. KETOVITE                           /00660901/ [Concomitant]
     Indication: VITAMIN SUPPLEMENTATION
     Dosage: 10 ML, BID
     Route: 003
     Dates: start: 20161202
  9. PARACETAMOL [Concomitant]
     Active Substance: ACETAMINOPHEN
     Indication: PROPHYLAXIS
  10. SODIUM FEREDETATE [Concomitant]
     Active Substance: SODIUM FEREDETATE
     Indication: PRODUCT USED FOR UNKNOWN INDICATION
     Dosage: 2.5 ML, TID
  11. SEBELIPASE ALFA [Suspect]
     Active Substance: SEBELIPASE ALFA
     Dosage: 5 MG/KG, QW
     Route: 042
     Dates: start: 20161130, end: 20161130
  12. HYDROCORTISONE. [Concomitant]
     Active Substance: HYDROCORTISONE
     Indication: PROPHYLAXIS
  13. VITAMIN E                          /00110501/ [Concomitant]
     Active Substance: TOCOPHEROL
     Indication: VITAMIN E DECREASED
     Dosage: 2 MG, QD
     Route: 003
     Dates: start: 20161202
  14. OMBERZOL [Concomitant]
     Indication: GASTROOESOPHAGEAL REFLUX DISEASE
     Dosage: 10 MG, BID
     Route: 003
     Dates: start: 20161202
  15. IRON [Concomitant]
     Active Substance: IRON
     Indication: ANAEMIA
     Route: 042
  16. SEBELIPASE ALFA [Suspect]
     Active Substance: SEBELIPASE ALFA
     Indication: LYSOSOMAL ACID LIPASE DEFICIENCY
     Dosage: 1 MG/KG, QW
     Route: 042
     Dates: start: 20150513, end: 20150812
  17. SEBELIPASE ALFA [Suspect]
     Active Substance: SEBELIPASE ALFA
     Dosage: 3 MG/KG, QW
     Route: 042
     Dates: start: 20150817, end: 20160331
  18. KETOVITE                           /00660901/ [Concomitant]
     Dosage: 10 ML, QD
     Route: 048
  19. RANITIDINE. [Concomitant]
     Active Substance: RANITIDINE
     Indication: PROPHYLAXIS
  20. CHLORPHENIRAMINE                   /00072501/ [Concomitant]
     Active Substance: CHLORPHENIRAMINE
     Indication: PROPHYLAXIS
  21. SEBELIPASE ALFA [Suspect]
     Active Substance: SEBELIPASE ALFA
     Dosage: 5 MG/KG, QW
     Route: 042
     Dates: start: 20160407
  22. DOMPERDONE [Concomitant]
     Dosage: 2 UNK, UNK
     Route: 050
  23. ABIDEC [Concomitant]
     Indication: PRODUCT USED FOR UNKNOWN INDICATION
     Dosage: 0.6 ML, UNK
     Route: 048

REACTIONS (3)
  - Gastroenteritis viral [Recovered/Resolved]
  - Influenza [Recovered/Resolved]
  - Drug specific antibody present [Recovered/Resolved]

NARRATIVE: CASE EVENT DATE: 20161202
